FAERS Safety Report 6821457-2 (Version None)
Quarter: 2010Q3

REPORT INFORMATION
  Report Type: 
  Country: None (occurrence: None)
  Receive Date: 20100707
  Receipt Date: 20081205
  Transmission Date: 20110219
  Serious: No
  Sender: FDA-Public Use
  Company Number: US-PFIZER INC-2008056209

PATIENT
  Sex: Female
  Weight: 76.2 kg

DRUGS (6)
  1. SERTRALINE HCL [Suspect]
     Dates: start: 20080101
  2. ESTRATEST [Concomitant]
  3. LIPITOR [Concomitant]
  4. LISINOPRIL [Concomitant]
  5. LORAZEPAM [Concomitant]
  6. ZOLOFT [Concomitant]

REACTIONS (5)
  - ANXIETY [None]
  - ASTHENIA [None]
  - FATIGUE [None]
  - PANIC ATTACK [None]
  - POOR QUALITY SLEEP [None]
